FAERS Safety Report 23878548 (Version 4)
Quarter: 2024Q4

REPORT INFORMATION
  Report Type: Spontaneous
  Country: US (occurrence: US)
  Receive Date: 20240521
  Receipt Date: 20241009
  Transmission Date: 20250115
  Serious: Yes (Other)
  Sender: PFIZER
  Company Number: US-PFIZER INC-202400110284

PATIENT
  Age: 10 Year
  Sex: Male
  Weight: 26.31 kg

DRUGS (2)
  1. GENOTROPIN [Suspect]
     Active Substance: SOMATROPIN
     Indication: Short stature
     Dosage: 1.2 MG, 1X/DAY JUST UNDER 30 DAYS
  2. LISDEXAMFETAMINE [Suspect]
     Active Substance: LISDEXAMFETAMINE
     Dosage: UNK

REACTIONS (3)
  - Headache [Unknown]
  - Accidental overdose [Unknown]
  - Device breakage [Unknown]

NARRATIVE: CASE EVENT DATE: 20240515
